FAERS Safety Report 13802203 (Version 1)
Quarter: 2017Q3

REPORT INFORMATION
  Report Type: Spontaneous
  Country: JP (occurrence: JP)
  Receive Date: 20170727
  Receipt Date: 20170727
  Transmission Date: 20171127
  Serious: Yes (Hospitalization)
  Sender: FDA-Public Use
  Company Number: JP-DEPOMED, INC.-JP-2017DEP001489

PATIENT
  Age: 69 Year
  Sex: Female
  Weight: 41 kg

DRUGS (4)
  1. SEVOFLURANE. [Suspect]
     Active Substance: SEVOFLURANE
     Indication: MAINTENANCE OF ANAESTHESIA
     Dosage: 1.0?2.0%
  2. FENTANYL. [Suspect]
     Active Substance: FENTANYL
     Indication: GENERAL ANAESTHESIA
     Dosage: 25 ?G, UNK
  3. THIAMYLAL [Suspect]
     Active Substance: THIAMYLAL
     Indication: GENERAL ANAESTHESIA
     Dosage: 150 MG, UNK
     Route: 042
  4. ROCURONIUM [Suspect]
     Active Substance: ROCURONIUM BROMIDE
     Indication: GENERAL ANAESTHESIA
     Dosage: 50 MG, UNK
     Route: 042

REACTIONS (1)
  - Atrioventricular block complete [Recovered/Resolved]
